FAERS Safety Report 9468754 (Version 1)
Quarter: 2013Q3

REPORT INFORMATION
  Report Type: Report from Study
  Country: DK (occurrence: DK)
  Receive Date: 20130821
  Receipt Date: 20130821
  Transmission Date: 20140515
  Serious: Yes (Other)
  Sender: FDA-Public Use
  Company Number: DK-ROCHE-1262587

PATIENT
  Sex: 0

DRUGS (4)
  1. BEVACIZUMAB [Suspect]
     Indication: NON-SMALL CELL LUNG CANCER
     Route: 042
  2. CARBOPLATIN [Suspect]
     Indication: NON-SMALL CELL LUNG CANCER
     Dosage: AREA UNDER CURVE (AUC 5)
     Route: 042
  3. VINORELBINE [Suspect]
     Indication: NON-SMALL CELL LUNG CANCER
     Route: 048
  4. VINORELBINE [Suspect]
     Route: 048

REACTIONS (8)
  - Leukopenia [Unknown]
  - Neutropenia [Unknown]
  - Febrile neutropenia [Unknown]
  - Thrombocytopenia [Unknown]
  - Haemorrhage [Unknown]
  - Neurotoxicity [Unknown]
  - Pulmonary embolism [Unknown]
  - Deep vein thrombosis [Unknown]
